FAERS Safety Report 9746442 (Version 3)
Quarter: 2014Q1

REPORT INFORMATION
  Report Type: Other
  Country: CA (occurrence: CA)
  Receive Date: 20131211
  Receipt Date: 20140122
  Transmission Date: 20141002
  Serious: Yes (Other)
  Sender: FDA-Public Use
  Company Number: CA-ACORDA-ACO_37761_2013

PATIENT
  Age: 50 Year
  Sex: Female

DRUGS (1)
  1. FAMPYRA [Suspect]
     Indication: GAIT DISTURBANCE
     Dosage: 10 MG, BID
     Route: 048
     Dates: start: 20130617, end: 20130722

REACTIONS (5)
  - Back pain [Recovered/Resolved]
  - Pain in extremity [Not Recovered/Not Resolved]
  - Mobility decreased [Unknown]
  - No therapeutic response [Unknown]
  - Drug ineffective [Unknown]
